FAERS Safety Report 6185770-7 (Version None)
Quarter: 2009Q2

REPORT INFORMATION
  Report Type: 
  Country: None (occurrence: None)
  Receive Date: 20090507
  Receipt Date: 20090427
  Transmission Date: 20091009
  Serious: Yes (Other)
  Sender: FDA-Public Use
  Company Number: KV200900474

PATIENT
  Age: 32 Year
  Sex: Female
  Weight: 90.7 kg

DRUGS (1)
  1. PRECARE (PRENATAL VITAMIN) TABLET [Suspect]
     Indication: PRENATAL CARE
     Dosage: ONE CAPLET DAILY, ORAL
     Route: 048
     Dates: start: 20070602, end: 20090317

REACTIONS (4)
  - ABORTION SPONTANEOUS [None]
  - DRUG EXPOSURE DURING PREGNANCY [None]
  - PREGNANCY [None]
  - PRODUCT QUALITY ISSUE [None]
